FAERS Safety Report 10486864 (Version 1)
Quarter: 2014Q4

REPORT INFORMATION
  Report Type: Spontaneous
  Country: US (occurrence: US)
  Receive Date: 20141001
  Receipt Date: 20141001
  Transmission Date: 20150528
  Serious: No
  Sender: FDA-Public Use
  Company Number: US-BAYER-2014-145679

PATIENT

DRUGS (1)
  1. ALEVE [Suspect]
     Active Substance: NAPROXEN SODIUM

REACTIONS (5)
  - Rash macular [Unknown]
  - Blister [Unknown]
  - Paraesthesia [Unknown]
  - Pruritus [Unknown]
  - Drug eruption [Unknown]
